FAERS Safety Report 5071778-1 (Version None)
Quarter: 2006Q3

REPORT INFORMATION
  Report Type: 
  Country: None (occurrence: None)
  Receive Date: 20060801
  Receipt Date: 20060725
  Transmission Date: 20061208
  Serious: Yes (Hospitalization)
  Sender: FDA-Public Use
  Company Number: 0603014US

PATIENT
  Age: 73 Year
  Sex: Female

DRUGS (3)
  1. ALESION TABLET(EPINASTINE HYDROCHLORIDE) TABLET, 10MG [Suspect]
     Indication: RHINITIS ALLERGIC
     Dosage: 20 MG, ORAL
     Route: 048
     Dates: start: 20000218, end: 20060508
  2. SIMVASTATIN [Concomitant]
  3. LOSARTAN POTASSIUM [Concomitant]

REACTIONS (5)
  - ALANINE AMINOTRANSFERASE INCREASED [None]
  - ASPARTATE AMINOTRANSFERASE INCREASED [None]
  - BLOOD LACTATE DEHYDROGENASE INCREASED [None]
  - HEPATIC FUNCTION ABNORMAL [None]
  - NASOPHARYNGITIS [None]
